FAERS Safety Report 23222568 (Version 1)
Quarter: 2023Q4

REPORT INFORMATION
  Report Type: Spontaneous
  Country: CN (occurrence: CN)
  Receive Date: 20231123
  Receipt Date: 20231123
  Transmission Date: 20240110
  Serious: Yes (Other)
  Sender: FDA-Public Use
  Company Number: None

PATIENT
  Age: 58 Year
  Sex: Male
  Weight: 58 kg

DRUGS (7)
  1. CYCLOPHOSPHAMIDE [Suspect]
     Active Substance: CYCLOPHOSPHAMIDE
     Indication: Peripheral T-cell lymphoma unspecified
     Dosage: 0.4 G, ONE TIME IN ONE DAY, DILUTED WITH 100ML, 0.9% SODIUM CHLORIDE (NORMAL SALINE), AT 16:00
     Route: 041
     Dates: start: 20231025, end: 20231027
  2. CYCLOPHOSPHAMIDE [Suspect]
     Active Substance: CYCLOPHOSPHAMIDE
     Indication: Immunosuppressant drug therapy
  3. ETOPOSIDE [Suspect]
     Active Substance: ETOPOSIDE
     Indication: Peripheral T-cell lymphoma unspecified
     Dosage: 0.1 G, ONE TIME IN ONE DAY, DILUTED WITH 500ML, 0.9% SODIUM CHLORIDE (NORMAL SALINE), AT 19:50
     Route: 041
     Dates: start: 20231101, end: 20231101
  4. ETOPOSIDE [Suspect]
     Active Substance: ETOPOSIDE
     Indication: Neoplasm
     Dosage: 0.1 G, ONE TIME IN ONE DAY, DILUTED WITH 500ML, 0.9% SODIUM CHLORIDE (NORMAL SALINE), AT 10:57
     Route: 041
     Dates: start: 20231102, end: 20231102
  5. SODIUM CHLORIDE [Suspect]
     Active Substance: SODIUM CHLORIDE
     Indication: Medication dilution
     Dosage: 100ML, ONE TIME IN ONE DAY, USED TO DILUTE 0.4G  CYCLOPHOSPHAMIDE, AT 16:00
     Route: 041
     Dates: start: 20231025, end: 20231027
  6. SODIUM CHLORIDE [Suspect]
     Active Substance: SODIUM CHLORIDE
     Dosage: 500ML, ONE TIME IN ONE DAY, USED TO DILUTE 0.1 G ETOPOSIDE, AT 19:50
     Route: 041
     Dates: start: 20231101, end: 20231101
  7. SODIUM CHLORIDE [Suspect]
     Active Substance: SODIUM CHLORIDE
     Dosage: 500ML, ONE TIME IN ONE DAY, USED TO DILUTE 0.1 G ETOPOSIDE, AT 10:57
     Route: 041
     Dates: start: 20231102, end: 20231102

REACTIONS (2)
  - Disease progression [Recovering/Resolving]
  - Haemoglobin decreased [Recovering/Resolving]

NARRATIVE: CASE EVENT DATE: 20231105
